FAERS Safety Report 12235240 (Version 1)
Quarter: 2016Q2

REPORT INFORMATION
  Report Type: Spontaneous
  Country: US (occurrence: US)
  Receive Date: 20160404
  Receipt Date: 20160404
  Transmission Date: 20160815
  Serious: No
  Sender: FDA-Public Use
  Company Number: US-TARO-2015TAR00222

PATIENT
  Sex: Female

DRUGS (2)
  1. FLUOROURACIL TOPICAL CREAM USP 5% [Suspect]
     Active Substance: FLUOROURACIL
     Indication: SKIN CANCER
     Dosage: 5 %, 2X/DAY
     Route: 061
     Dates: start: 20150130, end: 20150306
  2. NASONEX [Suspect]
     Active Substance: MOMETASONE FUROATE
     Dosage: 50 ?G, UP TO 2X/DAY
     Route: 045

REACTIONS (8)
  - Application site infection [Recovering/Resolving]
  - Application site erosion [Recovering/Resolving]
  - Drug interaction [Unknown]
  - Application site scab [Recovering/Resolving]
  - Application site discolouration [Recovered/Resolved]
  - Feeling abnormal [Not Recovered/Not Resolved]
  - Application site erythema [Recovering/Resolving]
  - Application site pain [Recovered/Resolved]

NARRATIVE: CASE EVENT DATE: 2015
